FAERS Safety Report 6089469-7 (Version None)
Quarter: 2009Q1

REPORT INFORMATION
  Report Type: 
  Country: None (occurrence: None)
  Receive Date: 20090219
  Receipt Date: 20090129
  Transmission Date: 20090719
  Serious: Yes (Life-Threatening, Hospitalization)
  Sender: FDA-Public Use
  Company Number: 20090022 /

PATIENT
  Age: 53 Year
  Sex: Male

DRUGS (2)
  1. VENOFER [Suspect]
     Indication: ANAEMIA
     Dosage: 200MG OVER 30MIN INTRAVENOUS
     Route: 042
     Dates: start: 20080819, end: 20090112
  2. XELODA (CAPACITABINE) [Concomitant]

REACTIONS (2)
  - EPISTAXIS [None]
  - METASTASES TO NASAL SINUSES [None]
